FAERS Safety Report 4300463-6 (Version None)
Quarter: 2004Q1

REPORT INFORMATION
  Report Type: 
  Country: None (occurrence: None)
  Receive Date: 20040218
  Receipt Date: 20040206
  Transmission Date: 20041129
  Serious: No
  Sender: FDA-Public Use
  Company Number: 04P-020-0249741-00

PATIENT

DRUGS (1)
  1. SEVORANE (SEVOFLURANE) (SEVOFLURANE) [Suspect]
     Indication: ANAESTHESIA
     Dosage: INHALATION

REACTIONS (3)
  - DRUG INEFFECTIVE [None]
  - MENTAL DISORDER [None]
  - UNWANTED AWARENESS DURING ANAESTHESIA [None]
